FAERS Safety Report 9099430 (Version 2)
Quarter: 2013Q1

REPORT INFORMATION
  Report Type: Report from Study
  Country: BR (occurrence: BR)
  Receive Date: 20130214
  Receipt Date: 20130225
  Transmission Date: 20140127
  Serious: Yes (Hospitalization)
  Sender: FDA-Public Use
  Company Number: BR-ABBOTT-13P-020-1048646-00

PATIENT
  Sex: Female

DRUGS (3)
  1. HUMIRA [Suspect]
     Indication: PSORIASIS
     Route: 058
     Dates: start: 201108, end: 201204
  2. CYCLOSPORINE [Suspect]
     Indication: PSORIASIS
     Route: 048
     Dates: start: 201204
  3. ACITRETIN [Concomitant]
     Indication: PSORIASIS
     Route: 048
     Dates: start: 20130124

REACTIONS (9)
  - Secretion discharge [Recovered/Resolved]
  - Skin odour abnormal [Recovered/Resolved]
  - Bacterial infection [Recovered/Resolved]
  - Rash [Recovered/Resolved]
  - Vomiting [Recovered/Resolved]
  - Asthenia [Recovered/Resolved]
  - Depression [Not Recovered/Not Resolved]
  - Dyspnoea [Recovered/Resolved]
  - Hypertension [Recovered/Resolved]
